FAERS Safety Report 25853710 (Version 1)
Quarter: 2025Q3

REPORT INFORMATION
  Report Type: Spontaneous
  Country: US (occurrence: US)
  Receive Date: 20250926
  Receipt Date: 20250926
  Transmission Date: 20251021
  Serious: Yes (Hospitalization)
  Sender: PARI RESPIRATORY EQUIPMENT
  Company Number: US-PARI RESPIRATORY EQUIPMENT, INC.-2025PAR00073

PATIENT
  Sex: Female
  Weight: 27.71 kg

DRUGS (4)
  1. KITABIS PAK [Suspect]
     Active Substance: TOBRAMYCIN
     Indication: Interstitial lung disease
     Dosage: 300 MG, 2X/DAY VIA NEBULIZER, FOR A CYCLE OF 28 DAYS ON AND 28 DAYS OFF
  2. KITABIS PAK [Suspect]
     Active Substance: TOBRAMYCIN
     Indication: Bronchiolitis obliterans syndrome
  3. KITABIS PAK [Suspect]
     Active Substance: TOBRAMYCIN
     Indication: Pneumonia
  4. KITABIS PAK [Suspect]
     Active Substance: TOBRAMYCIN
     Indication: Bronchiectasis

REACTIONS (2)
  - Hospitalisation [Unknown]
  - Off label use [Unknown]
